FAERS Safety Report 17395533 (Version 1)
Quarter: 2020Q1

REPORT INFORMATION
  Report Type: Spontaneous
  Country: US (occurrence: US)
  Receive Date: 20200124
  Receipt Date: 20200124
  Transmission Date: 20200409
  Serious: Yes (Hospitalization)
  Sender: FDA-Public Use
  Company Number: None

PATIENT
  Age: 33 Year
  Sex: Male

DRUGS (12)
  1. BUPROPION. [Concomitant]
     Active Substance: BUPROPION
  2. VITAMIN D [Concomitant]
     Active Substance: VITAMIN D NOS
  3. TADALAFIL. [Concomitant]
     Active Substance: TADALAFIL
  4. STELARA [Suspect]
     Active Substance: USTEKINUMAB
     Indication: PSORIASIS
     Dosage: ?          OTHER FREQUENCY:Q12WKS;?
     Route: 058
     Dates: start: 20190509
  5. COSENTYX [Concomitant]
     Active Substance: SECUKINUMAB
  6. FUROSEMIDE. [Concomitant]
     Active Substance: FUROSEMIDE
  7. LISINOPRIL. [Concomitant]
     Active Substance: LISINOPRIL
  8. METOPROL TAR [Concomitant]
  9. FLUTICASONE. [Concomitant]
     Active Substance: FLUTICASONE
  10. PANTOPRAZOLE [Concomitant]
     Active Substance: PANTOPRAZOLE
  11. POT CHLORIDE [Concomitant]
     Active Substance: POTASSIUM CHLORIDE
  12. WARFARIN [Concomitant]
     Active Substance: WARFARIN

REACTIONS (1)
  - Endocarditis bacterial [None]

NARRATIVE: CASE EVENT DATE: 201911
